FAERS Safety Report 9629196 (Version 1)
Quarter: 2013Q4

REPORT INFORMATION
  Report Type: Spontaneous
  Country: US (occurrence: US)
  Receive Date: 20131017
  Receipt Date: 20131017
  Transmission Date: 20140711
  Serious: Yes (Other)
  Sender: FDA-Public Use
  Company Number: US-PFIZER INC-2013295593

PATIENT
  Age: 59 Year
  Sex: Female

DRUGS (1)
  1. NEURONTIN [Suspect]
     Dosage: UNK
     Dates: end: 20120718

REACTIONS (4)
  - Convulsion [Unknown]
  - Confusional state [Unknown]
  - Incoherent [Unknown]
  - Somnolence [Unknown]
